FAERS Safety Report 7909482-1 (Version None)
Quarter: 2011Q4

REPORT INFORMATION
  Report Type: 
  Country: None (occurrence: None)
  Receive Date: 20111111
  Receipt Date: 20111104
  Transmission Date: 20120403
  Serious: Yes (Hospitalization, Other)
  Sender: FDA-Public Use
  Company Number: US-ELI_LILLY_AND_COMPANY-US201110000189

PATIENT
  Sex: Male
  Weight: 63.039 kg

DRUGS (4)
  1. ALIMTA [Suspect]
     Dosage: UNK, UNKNOWN
     Route: 065
     Dates: start: 20110526
  2. ALIMTA [Suspect]
     Dosage: UNK UNK, UNKNOWN
     Dates: start: 20110317
  3. ALIMTA [Suspect]
     Indication: LUNG ADENOCARCINOMA
     Dosage: UNK, UNKNOWN
     Route: 065
     Dates: start: 20110102
  4. CISPLATIN [Concomitant]
     Dosage: UNK, UNKNOWN
     Route: 065

REACTIONS (10)
  - PLEURAL EFFUSION [None]
  - FEBRILE NEUTROPENIA [None]
  - RENAL FAILURE ACUTE [None]
  - DEHYDRATION [None]
  - PANCYTOPENIA [None]
  - ASCITES [None]
  - FAILURE TO THRIVE [None]
  - NEOPLASM MALIGNANT [None]
  - DIARRHOEA [None]
  - ASTHENIA [None]
